FAERS Safety Report 7596017-9 (Version None)
Quarter: 2011Q3

REPORT INFORMATION
  Report Type: 
  Country: None (occurrence: None)
  Receive Date: 20110707
  Receipt Date: 20110628
  Transmission Date: 20111222
  Serious: Yes (Other)
  Sender: FDA-Public Use
  Company Number: PHHY2011US56286

PATIENT
  Sex: Male
  Weight: 185 kg

DRUGS (5)
  1. RITALIN [Concomitant]
     Dosage: 10 MG, QD
     Route: 048
  2. BACLOFEN [Concomitant]
     Dosage: 10 MG, TID
     Route: 048
  3. GABAPENTIN [Concomitant]
     Dosage: 100 MG, TID
     Route: 048
  4. GILENYA [Suspect]
     Indication: MULTIPLE SCLEROSIS
     Dosage: 0.5 MG, QD
     Route: 048
     Dates: start: 20110128, end: 20110603
  5. DITROPAN [Concomitant]
     Dosage: 5 MG, BID
     Route: 048

REACTIONS (4)
  - UPPER RESPIRATORY TRACT INFECTION [None]
  - CLUMSINESS [None]
  - CD4 LYMPHOCYTES DECREASED [None]
  - FATIGUE [None]
